FAERS Safety Report 21837554 (Version 1)
Quarter: 2023Q1

REPORT INFORMATION
  Report Type: Spontaneous
  Country: US (occurrence: None)
  Receive Date: 20230106
  Receipt Date: 20230106
  Transmission Date: 20230418
  Serious: No
  Sender: FDA-Public Use
  Company Number: None

PATIENT
  Age: 46 Year
  Sex: Female

DRUGS (1)
  1. EMGALITY [Suspect]
     Active Substance: GALCANEZUMAB-GNLM
     Indication: Migraine
     Dosage: FREQUENCY : MONTHLY;?
     Route: 058
     Dates: start: 20200811

REACTIONS (5)
  - Needle issue [None]
  - Device leakage [None]
  - Device defective [None]
  - Drug dose omission by device [None]
  - Wrong technique in product usage process [None]

NARRATIVE: CASE EVENT DATE: 20230103
